FAERS Safety Report 10451999 (Version 3)
Quarter: 2014Q4

REPORT INFORMATION
  Report Type: Spontaneous
  Country: JP (occurrence: JP)
  Receive Date: 20140915
  Receipt Date: 20141212
  Transmission Date: 20150528
  Serious: Yes (Other)
  Sender: FDA-Public Use
  Company Number: JP-BRISTOL-MYERS SQUIBB COMPANY-21377064

PATIENT
  Age: 63 Year
  Sex: Male

DRUGS (3)
  1. CARBOPLATIN. [Suspect]
     Active Substance: CARBOPLATIN
     Indication: SQUAMOUS CELL CARCINOMA OF HEAD AND NECK
     Dosage: 1 DF, QWK
     Route: 042
     Dates: start: 20140717, end: 20141017
  2. ERBITUX [Suspect]
     Active Substance: CETUXIMAB
     Indication: SQUAMOUS CELL CARCINOMA OF HEAD AND NECK
     Dosage: 400 MG/M2, QWK
     Route: 041
     Dates: start: 20140717, end: 20141024
  3. PACLITAXEL. [Suspect]
     Active Substance: PACLITAXEL
     Indication: SQUAMOUS CELL CARCINOMA OF HEAD AND NECK
     Dosage: 100 MG/M2, QWK
     Route: 041
     Dates: start: 20140717, end: 20141017

REACTIONS (17)
  - Dermatitis acneiform [Unknown]
  - Hypomagnesaemia [Unknown]
  - Respiratory tract haemorrhage [Unknown]
  - Blood bilirubin increased [Unknown]
  - Alopecia [Unknown]
  - Mucosal inflammation [Unknown]
  - Hearing impaired [Unknown]
  - Skin reaction [Unknown]
  - Pneumonitis [Unknown]
  - Constipation [Unknown]
  - Haemoglobin decreased [Unknown]
  - Hypoalbuminaemia [Unknown]
  - Fatigue [Unknown]
  - Platelet count decreased [Unknown]
  - Chest pain [Unknown]
  - Decreased appetite [Unknown]
  - Dysgeusia [Unknown]

NARRATIVE: CASE EVENT DATE: 20140717
